FAERS Safety Report 23612801 (Version 1)
Quarter: 2024Q1

REPORT INFORMATION
  Report Type: Spontaneous
  Country: PL (occurrence: PL)
  Receive Date: 20240308
  Receipt Date: 20240308
  Transmission Date: 20240410
  Serious: Yes (Life-Threatening)
  Sender: FDA-Public Use
  Company Number: None

PATIENT
  Age: 73 Year
  Sex: Female

DRUGS (6)
  1. DEXAMETHASONE [Suspect]
     Active Substance: DEXAMETHASONE
     Indication: Radiation sickness syndrome
     Route: 065
     Dates: start: 2019
  2. CIPROFLOXACIN [Suspect]
     Active Substance: CIPROFLOXACIN
     Indication: Radiation sickness syndrome
     Dosage: LATER CHANGED TO 3 X 300 MG OF CLINDAMYCIN AND TOPICAL LEVOFLOXACIN
     Route: 042
     Dates: start: 2019, end: 2019
  3. LEVOFLOXACIN [Suspect]
     Active Substance: LEVOFLOXACIN
     Indication: Radiation sickness syndrome
     Route: 061
     Dates: start: 2019
  4. CLINDAMYCIN [Suspect]
     Active Substance: CLINDAMYCIN
     Indication: Radiation sickness syndrome
     Route: 065
     Dates: start: 2019
  5. CISPLATIN [Concomitant]
     Active Substance: CISPLATIN
     Indication: Adenocarcinoma
     Dosage: CONCURRENT WEEKLY
     Dates: start: 2019, end: 2019
  6. NYSTATIN [Concomitant]
     Active Substance: NYSTATIN
     Indication: Radiation sickness syndrome
     Route: 065
     Dates: start: 2019

REACTIONS (1)
  - Therapy non-responder [Unknown]

NARRATIVE: CASE EVENT DATE: 20190101
